FAERS Safety Report 5164437-8 (Version None)
Quarter: 2006Q4

REPORT INFORMATION
  Report Type: 
  Country: None (occurrence: None)
  Receive Date: 20061205
  Receipt Date: 20060821
  Transmission Date: 20070319
  Serious: Yes (Other)
  Sender: FDA-Public Use
  Company Number: FR-JNJFOC-20061200273

PATIENT
  Sex: Male

DRUGS (8)
  1. ACETAMINOPHEN AND TRAMADOL HCL [Suspect]
     Indication: CERVICAL ROOT PAIN
     Route: 048
  2. PREVISCAN [Interacting]
     Indication: MITRAL VALVE REPLACEMENT
     Route: 065
  3. DIGOXIN [Concomitant]
     Indication: ARRHYTHMIA
     Route: 048
  4. ALDACTAZINE [Concomitant]
     Indication: HYPERTENSION
     Route: 048
  5. VASTEN [Concomitant]
     Indication: HYPERCHOLESTEROLAEMIA
     Route: 048
  6. ASPIRIN [Concomitant]
     Indication: ARRHYTHMIA
     Route: 048
  7. BISOPROLOL FUMARATE [Concomitant]
     Indication: HYPERTENSION
     Route: 065
  8. DIAMICRON [Concomitant]
     Indication: DIABETES MELLITUS NON-INSULIN-DEPENDENT
     Route: 065

REACTIONS (4)
  - DRUG INTERACTION [None]
  - FAECES DISCOLOURED [None]
  - INTERNATIONAL NORMALISED RATIO INCREASED [None]
  - PLATELET COUNT DECREASED [None]
